FAERS Safety Report 18918893 (Version 1)
Quarter: 2021Q1

REPORT INFORMATION
  Report Type: Spontaneous
  Country: JP (occurrence: JP)
  Receive Date: 20210220
  Receipt Date: 20210220
  Transmission Date: 20210420
  Serious: Yes (Other)
  Sender: FDA-Public Use
  Company Number: JP-SUN PHARMACEUTICAL INDUSTRIES LTD-2021RR-281378

PATIENT
  Age: 12 Year
  Sex: Male

DRUGS (7)
  1. DOXORUBICIN [Suspect]
     Active Substance: DOXORUBICIN
     Indication: EWING-LIKE SARCOMA
     Dosage: VDC?IE THERAPY
     Route: 065
  2. THIOTEPA. [Suspect]
     Active Substance: THIOTEPA
     Indication: NEOPLASM
     Dosage: UNK
     Route: 065
     Dates: start: 202003
  3. IFOSFAMIDE. [Suspect]
     Active Substance: IFOSFAMIDE
     Indication: EWING-LIKE SARCOMA
     Dosage: VDC?IE THERAPY
     Route: 065
  4. VINCRISTINE [Suspect]
     Active Substance: VINCRISTINE
     Indication: EWING-LIKE SARCOMA
     Dosage: VDC?IE THERAPY
     Route: 065
  5. ETOPOSIDE. [Suspect]
     Active Substance: ETOPOSIDE
     Indication: EWING-LIKE SARCOMA
     Dosage: VDC?IE THERAPY
     Route: 065
  6. MELPHALAN. [Suspect]
     Active Substance: MELPHALAN
     Indication: NEOPLASM
     Dosage: UNK
     Route: 065
     Dates: start: 202003
  7. CYCLOPHOSPHAMIDE. [Suspect]
     Active Substance: CYCLOPHOSPHAMIDE
     Indication: EWING-LIKE SARCOMA
     Dosage: VDC?IE THERAPY
     Route: 065

REACTIONS (3)
  - Therapeutic product effect incomplete [Unknown]
  - Drug ineffective [Unknown]
  - Drug resistance [Unknown]
